FAERS Safety Report 10204772 (Version 1)
Quarter: 2014Q2

REPORT INFORMATION
  Report Type: Spontaneous
  Country: US (occurrence: None)
  Receive Date: 20140527
  Receipt Date: 20140527
  Transmission Date: 20141212
  Serious: Yes (Hospitalization, Other)
  Sender: FDA-Public Use
  Company Number: None

PATIENT
  Age: 63 Year
  Sex: Male
  Weight: 104.33 kg

DRUGS (1)
  1. PROPOFOL [Suspect]

REACTIONS (3)
  - Hallucination [None]
  - Aggression [None]
  - Unresponsive to stimuli [None]
